FAERS Safety Report 13346115 (Version 1)
Quarter: 2017Q1

REPORT INFORMATION
  Report Type: Spontaneous
  Country: US (occurrence: US)
  Receive Date: 20170317
  Receipt Date: 20170317
  Transmission Date: 20170428
  Serious: No
  Sender: FDA-Public Use
  Company Number: US-GLAXOSMITHKLINE-US2017037259

PATIENT
  Sex: Female

DRUGS (1)
  1. VALTREX [Suspect]
     Active Substance: VALACYCLOVIR HYDROCHLORIDE
     Indication: ORAL HERPES
     Dosage: 1 G, BID

REACTIONS (4)
  - Condition aggravated [Unknown]
  - Oral herpes [Unknown]
  - Product label confusion [Unknown]
  - Accidental underdose [Unknown]

NARRATIVE: CASE EVENT DATE: 201409
